FAERS Safety Report 8580256-4 (Version None)
Quarter: 2012Q3

REPORT INFORMATION
  Report Type: 
  Country: None (occurrence: None)
  Receive Date: 20120808
  Receipt Date: 20120619
  Transmission Date: 20120928
  Serious: Yes (Life-Threatening, Other)
  Sender: FDA-Public Use
  Company Number: CHPA2012US013325

PATIENT
  Age: 69 Year
  Sex: Female

DRUGS (2)
  1. PRILOSEC [Concomitant]
  2. NUPERCAINAL [Suspect]
     Indication: HAEMORRHOIDS
     Dosage: UNK (A LITTLE BIT)
     Dates: end: 20120619

REACTIONS (11)
  - HAEMORRHAGE [None]
  - ARTERIAL HAEMORRHAGE [None]
  - ABDOMINAL PAIN UPPER [None]
  - CHONDROCALCINOSIS PYROPHOSPHATE [None]
  - FEELING ABNORMAL [None]
  - UMBILICAL HERNIA [None]
  - ATRIAL FIBRILLATION [None]
  - BLOOD PRESSURE DECREASED [None]
  - EXPIRED DRUG ADMINISTERED [None]
  - HEART RATE INCREASED [None]
  - ABDOMINAL PAIN LOWER [None]
